FAERS Safety Report 5102760-3 (Version None)
Quarter: 2006Q3

REPORT INFORMATION
  Report Type: 
  Country: None (occurrence: None)
  Receive Date: 20060907
  Receipt Date: 20060629
  Transmission Date: 20061208
  Serious: No
  Sender: FDA-Public Use
  Company Number: NL200608006174

PATIENT
  Sex: Female

DRUGS (2)
  1. ZYPREXA [Suspect]
  2. MICROGYNON/GFR/ (ETHINYLESTRADIOL, LEVONORESTREL) [Concomitant]

REACTIONS (1)
  - METRORRHAGIA [None]
